FAERS Safety Report 5104983-6 (Version None)
Quarter: 2006Q3

REPORT INFORMATION
  Report Type: 
  Country: None (occurrence: None)
  Receive Date: 20060911
  Receipt Date: 20060901
  Transmission Date: 20061208
  Serious: Yes (Other)
  Sender: FDA-Public Use
  Company Number: 163-20785-06090056

PATIENT
  Age: 71 Year
  Sex: Female

DRUGS (3)
  1. THALOMID [Suspect]
     Indication: MULTIPLE MYELOMA
     Dosage: 200 MG, 1 IN 1 D, ORAL
     Route: 048
     Dates: start: 20040907, end: 20050722
  2. HYDROCODONE [Concomitant]
  3. ARANESP [Concomitant]

REACTIONS (5)
  - BLOOD IMMUNOGLOBULIN G INCREASED [None]
  - DISEASE PROGRESSION [None]
  - NEUROPATHY [None]
  - NEUTROPENIA [None]
  - PATHOLOGICAL FRACTURE [None]
